FAERS Safety Report 6865912-8 (Version None)
Quarter: 2010Q3

REPORT INFORMATION
  Report Type: 
  Country: None (occurrence: None)
  Receive Date: 20100719
  Receipt Date: 20100713
  Transmission Date: 20110219
  Serious: Yes (Death)
  Sender: FDA-Public Use
  Company Number: RB-09489-2010

PATIENT
  Sex: Male

DRUGS (4)
  1. SUBUTEX [Suspect]
     Indication: PAIN
     Dosage: (8  MG QID SUBLINGUAL)
     Route: 060
     Dates: start: 20100301, end: 20100509
  2. SUBOXONE [Suspect]
     Indication: PAIN
     Dosage: (8 MG QID SUBLINGUAL)
     Route: 060
     Dates: start: 20090201, end: 20100301
  3. HYDROCODONE BITARTRATE [Suspect]
     Indication: PRODUCT USED FOR UNKNOWN INDICATION
     Dates: end: 20100509
  4. ALPRAZOLAM [Suspect]
     Indication: PRODUCT USED FOR UNKNOWN INDICATION
     Dates: end: 20100509

REACTIONS (2)
  - ACCIDENTAL OVERDOSE [None]
  - DRUG TOXICITY [None]
